FAERS Safety Report 5746909-8 (Version None)
Quarter: 2008Q2

REPORT INFORMATION
  Report Type: 
  Country: None (occurrence: None)
  Receive Date: 20080522
  Receipt Date: 20080513
  Transmission Date: 20081010
  Serious: Yes (Life-Threatening, Hospitalization, Disabling)
  Sender: FDA-Public Use
  Company Number: PT-BOEHRINGER INGELHEIM GMBH, GERMANY-2008-DE-02830PO

PATIENT
  Sex: Male
  Weight: 80 kg

DRUGS (7)
  1. VIRAMUNE [Suspect]
     Indication: HIV INFECTION
     Route: 048
     Dates: start: 20080126, end: 20080301
  2. LAMIVUDINE [Concomitant]
     Route: 048
     Dates: start: 20070701, end: 20080301
  3. ZIDOVUDINE [Concomitant]
     Route: 048
     Dates: start: 20070701, end: 20080301
  4. PYRIMETHAMINE TAB [Concomitant]
     Indication: HIV INFECTION
     Route: 048
     Dates: start: 20070701
  5. MIRTAZAPINE [Concomitant]
     Indication: DEPRESSION
     Route: 048
     Dates: start: 20080101, end: 20080301
  6. AZITHROMYCIN [Concomitant]
     Indication: HIV INFECTION
     Route: 048
     Dates: start: 20070701
  7. ATOVAQUONE [Concomitant]
     Indication: HIV INFECTION
     Route: 048
     Dates: start: 20070801

REACTIONS (6)
  - EOSINOPHILIA [None]
  - HEPATITIS [None]
  - HYPOXIA [None]
  - PNEUMONITIS [None]
  - PYREXIA [None]
  - RASH [None]
